FAERS Safety Report 15413330 (Version 5)
Quarter: 2019Q2

REPORT INFORMATION
  Report Type: Spontaneous
  Country: US (occurrence: US)
  Receive Date: 20180921
  Receipt Date: 20190508
  Transmission Date: 20190711
  Serious: Yes (Death, Hospitalization, Other)
  Sender: FDA-Public Use
  Company Number: US-PFIZER INC-2018147445

PATIENT
  Age: 52 Year
  Sex: Female
  Weight: 63 kg

DRUGS (46)
  1. NEXIUM [Suspect]
     Active Substance: ESOMEPRAZOLE MAGNESIUM
     Indication: ULCER HAEMORRHAGE
     Dosage: 40 MG, 1X/DAY
     Route: 048
     Dates: start: 20071029, end: 20170420
  2. AMITIZA [Concomitant]
     Active Substance: LUBIPROSTONE
     Dosage: 24 UG, 2X/DAY
     Route: 065
     Dates: start: 20080109
  3. PROPULSID [Concomitant]
     Active Substance: CISAPRIDE
     Dosage: 10 MG, 1X/DAY
     Route: 065
     Dates: start: 19971119
  4. PROZAC [Concomitant]
     Active Substance: FLUOXETINE HYDROCHLORIDE
     Indication: DEPRESSION
     Dosage: 10 MG, 1X/DAY
     Route: 065
     Dates: start: 19971119
  5. CELEXA [Concomitant]
     Active Substance: CITALOPRAM HYDROBROMIDE
     Indication: MAJOR DEPRESSION
     Dosage: 1 DF, 1X/DAY
     Route: 048
     Dates: start: 20170509
  6. AMOXICILLIN. [Concomitant]
     Active Substance: AMOXICILLIN
     Dosage: UNK
     Route: 065
     Dates: start: 20021001
  7. REMERON [Concomitant]
     Active Substance: MIRTAZAPINE
     Indication: MAJOR DEPRESSION
     Dosage: 1 DF, 1X/DAY
     Dates: start: 20030729, end: 20170419
  8. NEXIUM [Suspect]
     Active Substance: ESOMEPRAZOLE MAGNESIUM
     Indication: GASTROOESOPHAGEAL REFLUX DISEASE
  9. PROTONIX [Suspect]
     Active Substance: PANTOPRAZOLE SODIUM
     Dosage: UNK
     Dates: start: 1991
  10. TYLENOL [Concomitant]
     Active Substance: ACETAMINOPHEN
     Dosage: UNK, AS NEEDED
     Route: 065
     Dates: start: 20030729
  11. CIPROFLOXACIN. [Concomitant]
     Active Substance: CIPROFLOXACIN
     Dosage: UNK
     Route: 065
     Dates: start: 20140403
  12. PREMARIN [Concomitant]
     Active Substance: ESTROGENS, CONJUGATED
     Dosage: UNK
     Route: 065
     Dates: start: 20030106
  13. NEXIUM [Suspect]
     Active Substance: ESOMEPRAZOLE MAGNESIUM
     Indication: GASTROOESOPHAGEAL REFLUX DISEASE
     Dosage: 40 MG, DAILY
     Route: 048
     Dates: start: 1989
  14. NEXIUM 24HR [Suspect]
     Active Substance: ESOMEPRAZOLE MAGNESIUM
     Dosage: 2 DF, 1X/DAY
     Route: 048
  15. PREVACID [Suspect]
     Active Substance: LANSOPRAZOLE
     Indication: ULCER HAEMORRHAGE
     Dosage: 40 MG, QD
     Route: 048
     Dates: start: 19900705
  16. PRILOSEC [Suspect]
     Active Substance: OMEPRAZOLE MAGNESIUM
     Dosage: UNK
     Dates: start: 1991
  17. BENZTROPINE. [Concomitant]
     Active Substance: BENZTROPINE
     Dosage: UNK
     Route: 065
     Dates: start: 20170419
  18. FUROSEMIDE. [Concomitant]
     Active Substance: FUROSEMIDE
     Dosage: UNK
     Route: 065
     Dates: start: 20050823
  19. ESOMEPRAZOLE MAGNESIUM. [Suspect]
     Active Substance: ESOMEPRAZOLE MAGNESIUM
     Indication: GASTROOESOPHAGEAL REFLUX DISEASE
  20. HALOPERIDOL. [Concomitant]
     Active Substance: HALOPERIDOL
     Dosage: UNK
     Route: 065
     Dates: start: 20170420
  21. LIPITOR [Concomitant]
     Active Substance: ATORVASTATIN CALCIUM
     Dosage: 1 DF, 1X/DAY
     Route: 048
  22. PREVACID [Suspect]
     Active Substance: LANSOPRAZOLE
     Dosage: UNK
     Dates: start: 1991
  23. PRILOSEC [Suspect]
     Active Substance: OMEPRAZOLE MAGNESIUM
     Indication: ULCER HAEMORRHAGE
     Dosage: 40 MG, QD
     Route: 048
     Dates: start: 19900705
  24. PRILOSEC [Suspect]
     Active Substance: OMEPRAZOLE MAGNESIUM
     Dosage: 20 MG, DAILY
     Route: 048
     Dates: start: 19950526
  25. PRINIVIL [Concomitant]
     Active Substance: LISINOPRIL
     Indication: HYPERTENSION
     Dosage: 1 DF, 1X/DAY
     Route: 065
     Dates: start: 20111213
  26. NITROFURANTOIN. [Concomitant]
     Active Substance: NITROFURANTOIN
     Dosage: 100 MG, 1X/DAY
     Route: 065
     Dates: start: 20111213
  27. ASPIRIN. [Concomitant]
     Active Substance: ASPIRIN
     Dosage: 1 DF, 1X/DAY
     Route: 048
  28. OMEPRAZOLE. [Suspect]
     Active Substance: OMEPRAZOLE
     Indication: ULCER HAEMORRHAGE
     Dosage: UNK
     Route: 065
     Dates: start: 20030331
  29. OMEPRAZOLE. [Suspect]
     Active Substance: OMEPRAZOLE
     Dosage: UNK
     Route: 023
     Dates: start: 20030729
  30. ZOLOFT [Concomitant]
     Active Substance: SERTRALINE HYDROCHLORIDE
     Dosage: 50 MG, 1X/DAY
     Route: 065
     Dates: start: 19971119
  31. DIPHENHYDRAMINE. [Concomitant]
     Active Substance: DIPHENHYDRAMINE
     Dosage: UNK
     Route: 065
     Dates: start: 20170420
  32. NEXIUM [Suspect]
     Active Substance: ESOMEPRAZOLE MAGNESIUM
     Indication: ULCER HAEMORRHAGE
     Dosage: 40 MG, QD
     Route: 048
     Dates: start: 1990
  33. NEXIUM 24HR [Suspect]
     Active Substance: ESOMEPRAZOLE MAGNESIUM
     Dosage: UNK, DAILY
     Route: 048
  34. ESOMEPRAZOLE MAGNESIUM. [Suspect]
     Active Substance: ESOMEPRAZOLE MAGNESIUM
     Indication: ULCER HAEMORRHAGE
     Dosage: UNK
     Dates: start: 20160126
  35. ZANTAC [Concomitant]
     Active Substance: RANITIDINE HYDROCHLORIDE
     Dosage: 150 MG, 2X/DAY
     Route: 065
     Dates: start: 19950526
  36. LITHOTABS [Concomitant]
     Active Substance: LITHIUM CARBONATE
     Dosage: 1 DF, 3X/DAY
     Route: 065
     Dates: start: 20000629, end: 20170419
  37. SEROQUEL [Concomitant]
     Active Substance: QUETIAPINE FUMARATE
     Indication: DEPRESSION
     Dosage: 25 MG, 1X/DAY
     Route: 065
     Dates: start: 20030729
  38. RISPERDAL [Concomitant]
     Active Substance: RISPERIDONE
     Dosage: 2 MG, 1X/DAY
     Route: 065
     Dates: start: 20170419, end: 20170420
  39. DICLOFENAC [Concomitant]
     Active Substance: DICLOFENAC
     Dosage: UNK
     Route: 065
     Dates: start: 20170419
  40. TRANXENE T-TAB [Concomitant]
     Active Substance: CLORAZEPATE DIPOTASSIUM
     Dosage: 1 DF, 1X/DAY
     Route: 048
     Dates: start: 19971119, end: 20170419
  41. NEXIUM [Suspect]
     Active Substance: ESOMEPRAZOLE MAGNESIUM
     Dosage: UNK
     Dates: start: 1991
  42. PROTONIX [Suspect]
     Active Substance: PANTOPRAZOLE SODIUM
     Indication: ULCER HAEMORRHAGE
     Dosage: 40 MG, QD
     Route: 048
     Dates: start: 19900705
  43. ZEGERID [Suspect]
     Active Substance: OMEPRAZOLE\SODIUM BICARBONATE
     Indication: ULCER HAEMORRHAGE
     Dosage: 40 MG, QD
     Route: 048
     Dates: start: 19900705
  44. PREDNISONE. [Concomitant]
     Active Substance: PREDNISONE
     Dosage: 3 DF, 1X/DAY
     Route: 048
  45. AUGMENTIN XR [Concomitant]
     Active Substance: AMOXICILLIN\CLAVULANATE POTASSIUM
     Dosage: UNK
     Route: 065
     Dates: start: 20050519
  46. PLAVIX [Concomitant]
     Active Substance: CLOPIDOGREL BISULFATE
     Dosage: UNK
     Route: 065
     Dates: start: 20050609

REACTIONS (13)
  - Renal failure [Fatal]
  - Acute kidney injury [Fatal]
  - Cystitis interstitial [Fatal]
  - Renal disorder [Unknown]
  - End stage renal disease [Fatal]
  - Nephropathy [Fatal]
  - Dementia [Fatal]
  - Tubulointerstitial nephritis [Fatal]
  - Multiple organ dysfunction syndrome [Fatal]
  - Chronic kidney disease [Fatal]
  - Sepsis [Fatal]
  - Acute coronary syndrome [Fatal]
  - Renal cyst [Fatal]

NARRATIVE: CASE EVENT DATE: 20131003
